FAERS Safety Report 4470552-4 (Version None)
Quarter: 2004Q4

REPORT INFORMATION
  Report Type: 
  Country: None (occurrence: None)
  Receive Date: 20041011
  Receipt Date: 20040930
  Transmission Date: 20050328
  Serious: Yes (Other)
  Sender: FDA-Public Use
  Company Number: DE-JNJFOC-20040902100

PATIENT
  Age: 16 Year
  Sex: Female
  Weight: 76 kg

DRUGS (3)
  1. REMICADE [Suspect]
     Indication: UVEITIS
     Route: 042
  2. MYCOPHENOLATE [Concomitant]
     Indication: UVEITIS
  3. NAPROXEN [Concomitant]
     Indication: ARTHRITIS

REACTIONS (1)
  - FOCAL NODULAR HYPERPLASIA [None]
